FAERS Safety Report 26162932 (Version 1)
Quarter: 2025Q4

REPORT INFORMATION
  Report Type: Spontaneous
  Country: US (occurrence: None)
  Receive Date: 20251215
  Receipt Date: 20251215
  Transmission Date: 20260118
  Serious: No
  Sender: FDA-CTU
  Company Number: None

PATIENT
  Age: 79 Year
  Sex: Female

DRUGS (1)
  1. BENLYSTA [Suspect]
     Active Substance: BELIMUMAB
     Indication: Systemic lupus erythematosus
     Dosage: FREQUENCY : WEEKLY;
     Route: 058
     Dates: start: 20240419

REACTIONS (3)
  - Influenza like illness [None]
  - Nasopharyngitis [None]
  - Intentional dose omission [None]

NARRATIVE: CASE EVENT DATE: 20251214
